FAERS Safety Report 8265870-8 (Version None)
Quarter: 2012Q2

REPORT INFORMATION
  Report Type: 
  Country: None (occurrence: None)
  Receive Date: 20120406
  Receipt Date: 20120327
  Transmission Date: 20120825
  Serious: Yes (Hospitalization)
  Sender: FDA-Public Use
  Company Number: FR-GLAXOSMITHKLINE-B0708123A

PATIENT
  Sex: Female

DRUGS (10)
  1. MABTHERA [Suspect]
     Indication: LYMPHOMA
     Dosage: 600MG CYCLIC
     Route: 042
     Dates: start: 20100101, end: 20100601
  2. FOLIC ACID [Concomitant]
  3. BACTRIM [Suspect]
     Indication: PROPHYLAXIS
     Route: 048
     Dates: start: 20100101, end: 20101001
  4. FLUDARABINE PHOSPHATE [Concomitant]
     Indication: LYMPHOMA
     Route: 065
     Dates: start: 20100101, end: 20100601
  5. CYCLOPHOSPHAMIDE [Concomitant]
     Indication: LYMPHOMA
     Route: 042
     Dates: start: 20100101, end: 20100601
  6. COSOPT [Concomitant]
     Indication: GLAUCOMA
     Route: 047
     Dates: start: 20100701, end: 20110210
  7. LEVOTHYROXINE SODIUM [Concomitant]
  8. VALACYCLOVIR HYDROCHLORIDE [Suspect]
     Indication: PROPHYLAXIS
     Dosage: 500MG PER DAY
     Route: 048
     Dates: start: 20100101, end: 20110101
  9. BETABLOCKER [Concomitant]
     Dates: start: 20110201
  10. ATOVAQUONE [Suspect]
     Indication: PROPHYLAXIS
     Dosage: 750MG TWICE PER DAY
     Route: 048
     Dates: start: 20101001, end: 20110101

REACTIONS (8)
  - AGRANULOCYTOSIS [None]
  - INFLUENZA [None]
  - RETICULOCYTE COUNT DECREASED [None]
  - PYREXIA [None]
  - ASTHENIA [None]
  - FEBRILE NEUTROPENIA [None]
  - ANAEMIA MACROCYTIC [None]
  - INFLAMMATION [None]
